FAERS Safety Report 7484982-X (Version None)
Quarter: 2011Q2

REPORT INFORMATION
  Report Type: 
  Country: None (occurrence: None)
  Receive Date: 20110517
  Receipt Date: 20101006
  Transmission Date: 20111010
  Serious: No
  Sender: FDA-Public Use
  Company Number: US-BAYER-201022329BCC

PATIENT
  Age: 63 Year
  Sex: Female
  Weight: 86.364 kg

DRUGS (5)
  1. ASPIRIN [Concomitant]
  2. NAPROXEN (ALEVE) [Suspect]
     Dosage: CONSUMER TAKES 2 TABLETS AT 6:00AM, 1 TABLET AT 2:00PM AND 1 TABLET AT 10:00PM.
     Route: 048
  3. NAPROXEN (ALEVE) [Suspect]
     Indication: ARTHRALGIA
     Route: 048
  4. NORVASC [Concomitant]
  5. LISINOPRIL AND HYDROCHLOROTHIAZIDE [Concomitant]

REACTIONS (1)
  - NO ADVERSE EVENT [None]
